FAERS Safety Report 7686640-5 (Version None)
Quarter: 2011Q3

REPORT INFORMATION
  Report Type: 
  Country: None (occurrence: None)
  Receive Date: 20110816
  Receipt Date: 20110816
  Transmission Date: 20111222
  Serious: Yes (Hospitalization)
  Sender: FDA-Public Use
  Company Number: None

PATIENT
  Age: 34 Year
  Sex: Male
  Weight: 167.82 kg

DRUGS (1)
  1. NIASPAN [Suspect]
     Dosage: 1 TABLET

REACTIONS (2)
  - RASH GENERALISED [None]
  - HOT FLUSH [None]
